FAERS Safety Report 12557647 (Version 1)
Quarter: 2016Q3

REPORT INFORMATION
  Report Type: Spontaneous
  Country: AU (occurrence: AU)
  Receive Date: 20160714
  Receipt Date: 20160714
  Transmission Date: 20161109
  Serious: Yes (Death, Hospitalization)
  Sender: FDA-Public Use
  Company Number: AU-JNJFOC-20160704326

PATIENT
  Age: 57 Year
  Sex: Female

DRUGS (2)
  1. INFLIXIMAB, RECOMBINANT [Suspect]
     Active Substance: INFLIXIMAB
     Indication: CROHN^S DISEASE
     Route: 042
  2. HYDROCORTISONE. [Suspect]
     Active Substance: HYDROCORTISONE
     Indication: PRODUCT USED FOR UNKNOWN INDICATION
     Route: 065

REACTIONS (7)
  - Pneumonia [Fatal]
  - Aspergillus infection [Fatal]
  - Crohn^s disease [Unknown]
  - Exophthalmos [Unknown]
  - Pleural effusion [Fatal]
  - Stenotrophomonas infection [Fatal]
  - Bronchopulmonary aspergillosis [Fatal]
